FAERS Safety Report 7508199-5 (Version None)
Quarter: 2011Q2

REPORT INFORMATION
  Report Type: 
  Country: None (occurrence: None)
  Receive Date: 20110527
  Receipt Date: 20110321
  Transmission Date: 20111010
  Serious: No
  Sender: FDA-Public Use
  Company Number: US-MYLANLABS-2011S1006063

PATIENT
  Sex: Male

DRUGS (1)
  1. LANSOPRAZOLE [Suspect]
     Indication: DYSPEPSIA
     Route: 048
     Dates: start: 20100101

REACTIONS (2)
  - DRUG INEFFECTIVE [None]
  - DYSPEPSIA [None]
